FAERS Safety Report 24777829 (Version 1)
Quarter: 2024Q4

REPORT INFORMATION
  Report Type: Spontaneous
  Country: ES (occurrence: ES)
  Receive Date: 20241226
  Receipt Date: 20241226
  Transmission Date: 20250115
  Serious: Yes (Other)
  Sender: ALEXION PHARMACEUTICALS
  Company Number: ES-ASTRAZENECA-202412GLO017613ES

PATIENT
  Age: 66 Year

DRUGS (10)
  1. ROSUVASTATIN [Suspect]
     Active Substance: ROSUVASTATIN
  2. ROSUVASTATIN [Suspect]
     Active Substance: ROSUVASTATIN
  3. ENALAPRIL [Suspect]
     Active Substance: ENALAPRIL
     Route: 065
  4. ENALAPRIL [Suspect]
     Active Substance: ENALAPRIL
     Route: 065
  5. ENALAPRIL [Suspect]
     Active Substance: ENALAPRIL
     Route: 065
  6. ENALAPRIL [Suspect]
     Active Substance: ENALAPRIL
     Route: 065
  7. SERTRALINE [Suspect]
     Active Substance: SERTRALINE HYDROCHLORIDE
     Route: 065
  8. SERTRALINE [Suspect]
     Active Substance: SERTRALINE HYDROCHLORIDE
     Route: 065
  9. SERTRALINE [Suspect]
     Active Substance: SERTRALINE HYDROCHLORIDE
     Route: 065
  10. SERTRALINE [Suspect]
     Active Substance: SERTRALINE HYDROCHLORIDE
     Route: 065

REACTIONS (1)
  - Wernicke^s encephalopathy [Unknown]
